FAERS Safety Report 9782538 (Version 2)
Quarter: 2013Q4

REPORT INFORMATION
  Report Type: Report from Study
  Country: MX (occurrence: MX)
  Receive Date: 20131226
  Receipt Date: 20131226
  Transmission Date: 20140711
  Serious: Yes (Other)
  Sender: FDA-Public Use
  Company Number: PHHY2013MX131088

PATIENT
  Age: 66 Year
  Sex: Male
  Weight: 74 kg

DRUGS (17)
  1. ONBREZ [Suspect]
     Indication: RESPIRATORY FAILURE
     Dosage: 300 UG, QD
     Route: 055
     Dates: start: 201309
  2. ONBREZ [Suspect]
     Indication: OFF LABEL USE
  3. ONBREZ [Suspect]
     Indication: ASTHMA
  4. IRON [Concomitant]
     Indication: IRON DEFICIENCY
     Dosage: 1 DF, DAILY
     Dates: start: 201308
  5. IRON [Concomitant]
     Indication: ANAEMIA
  6. FOLIC ACID [Concomitant]
     Indication: PROPHYLAXIS
     Dosage: 2 DF, DAILY
     Dates: start: 201308
  7. TRIBEDOCE [Concomitant]
     Indication: PROPHYLAXIS
     Dosage: 2 DF, DAILY
     Dates: start: 201309
  8. TRIBEDOCE [Concomitant]
     Indication: ANAEMIA
  9. SPIRIVA [Concomitant]
     Indication: DYSPNOEA
     Dosage: 1 DF, DAILY
     Dates: start: 201309
  10. FERROUS FUMARATE [Concomitant]
     Indication: ANAEMIA
     Dosage: 200 MG, UNK
     Dates: start: 201308
  11. SERETIDE [Concomitant]
     Indication: RESPIRATORY FAILURE
     Dosage: 2 UKN, QD
     Dates: start: 201312
  12. SERETIDE [Concomitant]
     Indication: RESPIRATORY DISORDER
  13. PARACETAMOL [Concomitant]
     Indication: PAIN IN EXTREMITY
     Dosage: 4 DF, DAILY
     Dates: start: 201312
  14. KETOPROFEN [Concomitant]
     Indication: PAIN
     Dosage: 2 DF, DAILY OMLY FOR 5 DAYS
  15. OMEPRAZOLE [Concomitant]
     Indication: ANAEMIA
     Dosage: 20 MG, UNK (IN THE MORNING)
     Dates: start: 201309
  16. OMEPRAZOLE [Concomitant]
     Indication: DYSPEPSIA
  17. METICORTEN [Concomitant]
     Indication: ANAEMIA
     Dosage: 25 MG, DAILY
     Dates: start: 201308

REACTIONS (12)
  - Humerus fracture [Not Recovered/Not Resolved]
  - Fall [Not Recovered/Not Resolved]
  - Face injury [Not Recovered/Not Resolved]
  - Spinal deformity [Recovering/Resolving]
  - Chest pain [Recovering/Resolving]
  - Pain in extremity [Unknown]
  - Anaemia [Not Recovered/Not Resolved]
  - Haematoma [Unknown]
  - Joint swelling [Not Recovered/Not Resolved]
  - Back pain [Not Recovered/Not Resolved]
  - Ageusia [Unknown]
  - Weight increased [Not Recovered/Not Resolved]
